FAERS Safety Report 9805397 (Version 1)
Quarter: 2014Q1

REPORT INFORMATION
  Report Type: Spontaneous
  Country: US (occurrence: US)
  Receive Date: 20140109
  Receipt Date: 20140109
  Transmission Date: 20141002
  Serious: No
  Sender: FDA-Public Use
  Company Number: US-PFIZER INC-2014003545

PATIENT
  Age: 46 Year
  Sex: Male

DRUGS (8)
  1. SOMAVERT [Suspect]
     Dosage: UNK
     Dates: start: 20120315
  2. ANDROGEL [Concomitant]
     Dosage: UNK
  3. CRESTOR [Concomitant]
     Dosage: UNK
  4. BUTORPHANOL [Concomitant]
     Dosage: UNK
  5. LISINOPRIL [Concomitant]
     Dosage: UNK
  6. SPIRONOLACTONE [Concomitant]
     Dosage: UNK
  7. TRAZODONE [Concomitant]
     Dosage: UNK
  8. CITALOPRAM [Concomitant]
     Dosage: UNK

REACTIONS (4)
  - Nausea [Unknown]
  - Back pain [Unknown]
  - Abdominal distension [Unknown]
  - Weight increased [Unknown]
